FAERS Safety Report 9655303 (Version 2)
Quarter: 2014Q1

REPORT INFORMATION
  Report Type: Spontaneous
  Country: US (occurrence: US)
  Receive Date: 20131029
  Receipt Date: 20140108
  Transmission Date: 20141002
  Serious: Yes (Death)
  Sender: FDA-Public Use
  Company Number: US-NAPPMUNDI-USA-2012-0087743

PATIENT
  Age: 25 Year
  Sex: Male

DRUGS (6)
  1. OXYCONTIN (NDA 22-272) [Suspect]
     Indication: PAIN
     Dosage: 30 MG, Q12H
     Route: 048
     Dates: start: 20101209, end: 201109
  2. OXYCONTIN (NDA 22-272) [Suspect]
     Dosage: 30 MG, Q12H
     Route: 048
     Dates: start: 20120521, end: 20120523
  3. SEROQUEL [Suspect]
     Indication: BIPOLAR I DISORDER
     Dosage: 200 MG, BID
     Route: 048
  4. SEROQUEL [Suspect]
     Indication: PSYCHOTIC BEHAVIOUR
     Dosage: 100 MG, BID
     Route: 048
     Dates: start: 20110610, end: 20120523
  5. ALPRAZOLAM [Concomitant]
     Indication: ANXIETY
     Dosage: 2 MG, BID
     Route: 048
     Dates: start: 20110421, end: 20120523
  6. PROZAC [Concomitant]
     Indication: DEPRESSION
     Dosage: 40 MG, DAILY
     Route: 048
     Dates: start: 20111027, end: 20120523

REACTIONS (2)
  - Overdose [Fatal]
  - Cardiomegaly [Fatal]
